FAERS Safety Report 9989513 (Version 1)
Quarter: 2014Q1

REPORT INFORMATION
  Report Type: Report from Study
  Country: US (occurrence: US)
  Receive Date: 20140310
  Receipt Date: 20140310
  Transmission Date: 20141002
  Serious: No
  Sender: FDA-Public Use
  Company Number: US-ABBVIE-13P-163-1136117-00

PATIENT
  Age: 80 Year
  Sex: Female
  Weight: 81.72 kg

DRUGS (16)
  1. HUMIRA [Suspect]
     Indication: PSORIASIS
     Dosage: ONE DOSE
     Dates: start: 20130731, end: 20130731
  2. HUMIRA [Suspect]
     Dates: start: 20130808
  3. TYLENOL [Suspect]
     Indication: INSOMNIA
  4. DULCOLAX [Suspect]
     Indication: CONSTIPATION
     Dosage: AS NEEDED
     Route: 048
  5. PRAVASTATIN [Concomitant]
     Indication: BLOOD CHOLESTEROL INCREASED
  6. ZETIA [Concomitant]
     Indication: BLOOD CHOLESTEROL INCREASED
  7. GABAPENTIN [Concomitant]
     Indication: RESTLESS LEGS SYNDROME
  8. VENLAFAXINE [Concomitant]
     Indication: DEPRESSION
  9. MISOPROSTOL [Concomitant]
     Indication: GASTROOESOPHAGEAL REFLUX DISEASE
  10. ASPIRIN [Concomitant]
     Indication: CARDIOVASCULAR EVENT PROPHYLAXIS
  11. AVAPRO [Concomitant]
     Indication: HYPERTENSION
  12. UNNAMED MEDICATION [Concomitant]
     Indication: HYPOTHYROIDISM
  13. IRON [Concomitant]
     Indication: BLOOD IRON DECREASED
     Dosage: AS NEEDED
     Route: 042
  14. VITAMIN B12 [Concomitant]
     Indication: VITAMIN SUPPLEMENTATION
  15. VITAMIN D3 [Concomitant]
     Indication: VITAMIN SUPPLEMENTATION
  16. NEXIUM [Concomitant]
     Indication: GASTROOESOPHAGEAL REFLUX DISEASE

REACTIONS (2)
  - Nausea [Recovered/Resolved]
  - Nausea [Recovered/Resolved]
